FAERS Safety Report 7955567-3 (Version None)
Quarter: 2011Q4

REPORT INFORMATION
  Report Type: 
  Country: None (occurrence: None)
  Receive Date: 20111202
  Receipt Date: 20111124
  Transmission Date: 20120403
  Serious: Yes (Other)
  Sender: FDA-Public Use
  Company Number: BR-ASTRAZENECA-2011SE47057

PATIENT
  Age: 72 Year
  Sex: Male
  Weight: 74 kg

DRUGS (3)
  1. ATACAND [Suspect]
     Indication: HYPERTENSION
     Route: 048
     Dates: start: 20101001, end: 20110701
  2. ATACAND [Suspect]
     Route: 048
  3. ASPIRIN [Concomitant]
     Dosage: ONCE DAILY
     Route: 048
     Dates: start: 20101001

REACTIONS (6)
  - VENOUS OCCLUSION [None]
  - GOUT [None]
  - DRUG INEFFECTIVE [None]
  - CHEST PAIN [None]
  - BLOOD CHOLESTEROL INCREASED [None]
  - BLOOD PRESSURE INADEQUATELY CONTROLLED [None]
